FAERS Safety Report 17327646 (Version 1)
Quarter: 2020Q1

REPORT INFORMATION
  Report Type: Spontaneous
  Country: DE (occurrence: DE)
  Receive Date: 20200127
  Receipt Date: 20200127
  Transmission Date: 20200409
  Serious: Yes (Hospitalization, Other)
  Sender: FDA-Public Use
  Company Number: DE-MYLANLABS-2020M1008517

PATIENT
  Age: 32 Year
  Sex: Male
  Weight: 116.5 kg

DRUGS (17)
  1. PREGABALIN. [Suspect]
     Active Substance: PREGABALIN
     Dosage: 300 MG, UNK (DAILY)
     Route: 048
     Dates: start: 201706
  2. VENLAFAXINE [Concomitant]
     Active Substance: VENLAFAXINE HYDROCHLORIDE
     Indication: PRODUCT USED FOR UNKNOWN INDICATION
     Dosage: UNK
     Dates: start: 201706
  3. LITHIUM CARBONATE. [Suspect]
     Active Substance: LITHIUM CARBONATE
     Indication: PRODUCT USED FOR UNKNOWN INDICATION
     Dosage: 1125 MG, UNK (DAILY)
     Dates: start: 201511, end: 20160730
  4. DOXEPIN [Suspect]
     Active Substance: DOXEPIN
     Dosage: UNK (DOSE BETWEEN 50-0 MG PER DAY)
     Route: 048
     Dates: start: 20160830, end: 20160831
  5. DOXEPIN [Suspect]
     Active Substance: DOXEPIN
     Dosage: 100 MG, UNK (DAILY)
     Route: 048
     Dates: start: 20160803, end: 20160829
  6. LITHIUM CARBONATE. [Suspect]
     Active Substance: LITHIUM CARBONATE
     Dosage: 900 MILLIGRAM, QD
     Route: 048
     Dates: start: 20160731, end: 20160828
  7. BUPROPION. [Concomitant]
     Active Substance: BUPROPION
     Indication: PRODUCT USED FOR UNKNOWN INDICATION
     Dosage: UNK
  8. PREGABALIN. [Suspect]
     Active Substance: PREGABALIN
     Indication: PRODUCT USED FOR UNKNOWN INDICATION
     Dosage: 300 MG, UNK (DAILY)
     Dates: start: 2014, end: 20160829
  9. DOXEPIN [Suspect]
     Active Substance: DOXEPIN
     Indication: ANTIDEPRESSANT THERAPY
     Dosage: UNK (DOSE BETWEEN 25-100 MG PER DAY)
     Route: 048
     Dates: start: 20160725, end: 20160802
  10. SIRDALUD [Suspect]
     Active Substance: TIZANIDINE
     Indication: MUSCLE RELAXANT THERAPY
     Dosage: 12 MG, UNK (DAILY)
     Route: 048
     Dates: start: 201605
  11. SIRDALUD [Suspect]
     Active Substance: TIZANIDINE
     Dosage: UNK (DOSE TAPER FROM 12 TO 5 MG)
     Route: 048
     Dates: start: 2016, end: 20160829
  12. OMEPRAZOLE. [Concomitant]
     Active Substance: OMEPRAZOLE
     Dosage: 40 MG, UNK (PER DAY)
  13. LITHIUM CARBONATE. [Suspect]
     Active Substance: LITHIUM CARBONATE
     Dosage: 900 MG, UNK (DAILY)
     Dates: start: 201706, end: 20171123
  14. PREGABALIN. [Suspect]
     Active Substance: PREGABALIN
     Dosage: 175 MG, UNK (DAILY)
     Route: 048
     Dates: start: 20160731, end: 20160828
  15. SIRDALUD [Suspect]
     Active Substance: TIZANIDINE
     Dosage: UNK (DOSE TAPER FROM 5 MG TO 0)
     Route: 048
     Dates: start: 20160830, end: 20160906
  16. OMEPRAZOLE. [Concomitant]
     Active Substance: OMEPRAZOLE
     Indication: GASTROINTESTINAL DISORDER
     Dosage: 20 MG, UNK (PER DAY)
     Dates: start: 20171110, end: 20171121
  17. VITAMIN D                          /07503901/ [Concomitant]
     Active Substance: VITAMIN D NOS
     Indication: VITAMIN SUPPLEMENTATION
     Dosage: UNK (500 IE PER DAY)

REACTIONS (14)
  - Proteinuria [Recovered/Resolved]
  - Hypoalbuminaemia [Recovered/Resolved]
  - Haematuria [Recovered/Resolved]
  - Protein S decreased [Recovered/Resolved]
  - Nephrotic syndrome [Recovered/Resolved]
  - Psychotic disorder [Unknown]
  - Disease recurrence [Recovered/Resolved]
  - Pleural effusion [Recovered/Resolved]
  - Dyspnoea [Recovered/Resolved]
  - Oedema [Recovered/Resolved]
  - Drug ineffective [Unknown]
  - Kidney enlargement [Unknown]
  - Weight increased [Unknown]
  - Albuminuria [Recovered/Resolved]

NARRATIVE: CASE EVENT DATE: 2016
